FAERS Safety Report 8328529-4 (Version None)
Quarter: 2012Q2

REPORT INFORMATION
  Report Type: 
  Country: None (occurrence: None)
  Receive Date: 20120430
  Receipt Date: 20120418
  Transmission Date: 20120825
  Serious: Yes (Other)
  Sender: FDA-Public Use
  Company Number: 1262228

PATIENT
  Age: 62 Year
  Sex: Female

DRUGS (6)
  1. PRIMPERAN TAB [Concomitant]
  2. LOPERAMIDE [Concomitant]
  3. TRAMADOL HYDROCHLORIDE [Concomitant]
  4. (ALVEDON) [Concomitant]
  5. DOCETAXEL [Suspect]
     Indication: BREAST CANCER
     Dosage: INTRAVENOUS DRIP
     Route: 041
     Dates: start: 20110707, end: 20110707
  6. HERCEPTIN [Suspect]
     Indication: BREAST CANCER
     Dosage: INTRAVENOUS (NOT OTHERWISE SPECIFIED)
     Route: 042
     Dates: start: 20110707, end: 20110707

REACTIONS (4)
  - OBSTRUCTIVE AIRWAYS DISORDER [None]
  - SENSATION OF PRESSURE [None]
  - NERVOUSNESS [None]
  - HEART RATE INCREASED [None]
